FAERS Safety Report 7578706-5 (Version None)
Quarter: 2011Q2

REPORT INFORMATION
  Report Type: 
  Country: None (occurrence: None)
  Receive Date: 20110628
  Receipt Date: 20110617
  Transmission Date: 20111010
  Serious: Yes (Death)
  Sender: FDA-Public Use
  Company Number: ES-UCBSA-035624

PATIENT
  Age: 44 Year
  Sex: Female

DRUGS (6)
  1. KEPPRA [Suspect]
     Indication: GLIOBLASTOMA
     Route: 048
     Dates: start: 20110101, end: 20110505
  2. KETOROLAC TROMETHAMINE [Interacting]
     Indication: PHARYNGITIS
     Route: 048
     Dates: start: 20110504, end: 20110505
  3. DEXAMETHASONE [Concomitant]
  4. OMEPRAZOLE [Concomitant]
  5. AUGMENTIN '125' [Interacting]
     Indication: PHARYNGITIS
     Route: 048
     Dates: start: 20110504, end: 20110505
  6. TEMODAL [Interacting]
     Indication: GLIOBLASTOMA
     Dates: start: 20110101, end: 20110505

REACTIONS (1)
  - TOXIC EPIDERMAL NECROLYSIS [None]
